FAERS Safety Report 8064080-7 (Version None)
Quarter: 2012Q1

REPORT INFORMATION
  Report Type: 
  Country: None (occurrence: None)
  Receive Date: 20120123
  Receipt Date: 20120112
  Transmission Date: 20120608
  Serious: Yes (Hospitalization)
  Sender: FDA-Public Use
  Company Number: US-GLAXOSMITHKLINE-A0914520A

PATIENT
  Age: 51 Year
  Sex: Male
  Weight: 72.7 kg

DRUGS (6)
  1. VYTORIN [Concomitant]
  2. AVANDARYL [Suspect]
     Indication: DIABETES MELLITUS
     Route: 048
  3. LOTENSIN [Concomitant]
  4. INSULIN [Concomitant]
  5. AVANDIA [Suspect]
     Indication: DIABETES MELLITUS
     Dosage: 4MG TWICE PER DAY
     Route: 048
     Dates: start: 20010101
  6. GLUCOVANCE [Concomitant]

REACTIONS (2)
  - CORONARY ARTERY DISEASE [None]
  - ACUTE MYOCARDIAL INFARCTION [None]
